FAERS Safety Report 16285618 (Version 1)
Quarter: 2019Q2

REPORT INFORMATION
  Report Type: Spontaneous
  Country: US (occurrence: US)
  Receive Date: 20190508
  Receipt Date: 20190508
  Transmission Date: 20190711
  Serious: No
  Sender: FDA-Public Use
  Company Number: US-BAYER-2019-091669

PATIENT
  Age: 56 Year
  Sex: Female

DRUGS (3)
  1. ACTHAR [Concomitant]
     Active Substance: CORTICOTROPIN
  2. ALEVE [Suspect]
     Active Substance: NAPROXEN SODIUM
  3. BACLOFEN. [Concomitant]
     Active Substance: BACLOFEN

REACTIONS (1)
  - Drug ineffective [Unknown]
